FAERS Safety Report 18723103 (Version 1)
Quarter: 2021Q1

REPORT INFORMATION
  Report Type: Spontaneous
  Country: US (occurrence: US)
  Receive Date: 20210107
  Receipt Date: 20210107
  Transmission Date: 20210419
  Serious: Yes (Other)
  Sender: FDA-Public Use
  Company Number: None

PATIENT
  Age: 74 Year
  Sex: Female

DRUGS (1)
  1. SUTENT [Suspect]
     Active Substance: SUNITINIB MALATE
     Indication: RENAL CANCER
     Dosage: ?          OTHER FREQUENCY:DAILY FOR 14 DAYS ;?
     Route: 048

REACTIONS (6)
  - Skin injury [None]
  - Eye contusion [None]
  - Pain in extremity [None]
  - Arthralgia [None]
  - Fall [None]
  - Contusion [None]

NARRATIVE: CASE EVENT DATE: 20201226
